FAERS Safety Report 25701120 (Version 1)
Quarter: 2025Q3

REPORT INFORMATION
  Report Type: Spontaneous
  Country: US (occurrence: US)
  Receive Date: 20250819
  Receipt Date: 20250819
  Transmission Date: 20251021
  Serious: No
  Sender: BIOMARIN
  Company Number: US-BIOMARINAP-US-2025-168070

PATIENT
  Age: 2 Year
  Sex: Female

DRUGS (2)
  1. JAVYGTOR [Suspect]
     Active Substance: SAPROPTERIN DIHYDROCHLORIDE
     Indication: Phenylketonuria
     Dosage: 200 MILLIGRAM, QD
  2. KUVAN [Suspect]
     Active Substance: SAPROPTERIN DIHYDROCHLORIDE
     Indication: Product used for unknown indication

REACTIONS (4)
  - Sleep disorder [Unknown]
  - Psychomotor hyperactivity [Unknown]
  - Overdose [Unknown]
  - Product prescribing error [Unknown]
